FAERS Safety Report 25096514 (Version 2)
Quarter: 2025Q2

REPORT INFORMATION
  Report Type: Spontaneous
  Country: ES (occurrence: ES)
  Receive Date: 20250319
  Receipt Date: 20250403
  Transmission Date: 20250717
  Serious: Yes (Other)
  Sender: MYLAN
  Company Number: ES-AMGEN-ESPSP2025037777

PATIENT
  Age: 59 Year
  Sex: Male

DRUGS (16)
  1. POMALIDOMIDE [Suspect]
     Active Substance: POMALIDOMIDE
     Indication: Plasma cell myeloma
  2. POMALIDOMIDE [Suspect]
     Active Substance: POMALIDOMIDE
     Route: 065
  3. POMALIDOMIDE [Suspect]
     Active Substance: POMALIDOMIDE
     Route: 065
  4. POMALIDOMIDE [Suspect]
     Active Substance: POMALIDOMIDE
  5. DEXAMETHASONE [Suspect]
     Active Substance: DEXAMETHASONE
     Indication: Plasma cell myeloma
  6. DEXAMETHASONE [Suspect]
     Active Substance: DEXAMETHASONE
     Route: 065
  7. DEXAMETHASONE [Suspect]
     Active Substance: DEXAMETHASONE
     Route: 065
  8. DEXAMETHASONE [Suspect]
     Active Substance: DEXAMETHASONE
  9. KYPROLIS [Suspect]
     Active Substance: CARFILZOMIB
     Indication: Plasma cell myeloma
  10. KYPROLIS [Suspect]
     Active Substance: CARFILZOMIB
     Route: 065
  11. KYPROLIS [Suspect]
     Active Substance: CARFILZOMIB
     Route: 065
  12. KYPROLIS [Suspect]
     Active Substance: CARFILZOMIB
  13. ISATUXIMAB [Suspect]
     Active Substance: ISATUXIMAB
     Indication: Plasma cell myeloma
  14. ISATUXIMAB [Suspect]
     Active Substance: ISATUXIMAB
     Route: 065
  15. ISATUXIMAB [Suspect]
     Active Substance: ISATUXIMAB
     Route: 065
  16. ISATUXIMAB [Suspect]
     Active Substance: ISATUXIMAB

REACTIONS (6)
  - Terminal state [Unknown]
  - Renal impairment [Unknown]
  - Plasma cell myeloma refractory [Unknown]
  - Skin disorder [Unknown]
  - Eyelid disorder [Unknown]
  - Off label use [Unknown]
